FAERS Safety Report 24091386 (Version 2)
Quarter: 2024Q3

REPORT INFORMATION
  Report Type: Spontaneous
  Country: FR (occurrence: FR)
  Receive Date: 20240715
  Receipt Date: 20240724
  Transmission Date: 20241017
  Serious: Yes (Hospitalization, Congenital Anomaly, Other)
  Sender: UCB
  Company Number: None

PATIENT
  Sex: Female
  Weight: 3.76 kg

DRUGS (4)
  1. KEPPRA [Suspect]
     Active Substance: LEVETIRACETAM
     Indication: Epilepsy
     Dosage: 1 DOSAGE FORM, ONCE DAILY (QD)
     Route: 064
     Dates: end: 200704
  2. CLOBAZAM [Suspect]
     Active Substance: CLOBAZAM
     Indication: Epilepsy
     Dosage: 1 DOSAGE FORM, 2X/DAY (BID)
     Route: 064
     Dates: start: 200704, end: 20070616
  3. VALPROATE SODIUM [Suspect]
     Active Substance: VALPROATE SODIUM
     Indication: Epilepsy
     Dosage: 250 MILLIGRAM, 2X/DAY (BID)
     Route: 064
     Dates: end: 200704
  4. VALPROATE SODIUM [Suspect]
     Active Substance: VALPROATE SODIUM
     Dosage: 500 MILLIGRAM, 2X/DAY (BID)
     Route: 064
     Dates: start: 200704, end: 20070616

REACTIONS (58)
  - Congenital oral malformation [Unknown]
  - Hypotonia neonatal [Recovered/Resolved with Sequelae]
  - Congenital musculoskeletal disorder of skull [Unknown]
  - Foetal anticonvulsant syndrome [Unknown]
  - Maternal exposure during pregnancy [Unknown]
  - Pyelocaliectasis [Recovered/Resolved]
  - Congenital genitourinary abnormality [Recovered/Resolved]
  - Talipes [Unknown]
  - Developmental delay [Unknown]
  - Macrocephaly [Unknown]
  - Ureteric dilatation [Recovered/Resolved]
  - Congenital nose malformation [Unknown]
  - Dysmorphism [Recovered/Resolved with Sequelae]
  - Pyelonephritis [Unknown]
  - Bronchiolitis [Unknown]
  - Urinary tract infection [Unknown]
  - Influenza [Unknown]
  - Weight gain poor [Unknown]
  - Angina pectoris [Unknown]
  - Periventricular leukomalacia [Unknown]
  - Gross motor delay [Unknown]
  - Seizure [Unknown]
  - Fracture of clavicle due to birth trauma [Unknown]
  - Generalised tonic-clonic seizure [Unknown]
  - Intercostal neuralgia [Unknown]
  - Gianotti-Crosti syndrome [Unknown]
  - Motor dysfunction [Unknown]
  - Cough [Unknown]
  - Constipation [Unknown]
  - Pyrexia [Unknown]
  - Viral tracheitis [Unknown]
  - Nasopharyngitis [Unknown]
  - Abdominal pain [Unknown]
  - Neck pain [Unknown]
  - Disturbance in attention [Unknown]
  - Muscle contracture [Unknown]
  - Gastrooesophageal reflux disease [Unknown]
  - Abdominal pain upper [Unknown]
  - Childhood asthma [Unknown]
  - Amino acid level increased [Unknown]
  - Anxiety [Unknown]
  - Gait disturbance [Unknown]
  - Rash [Unknown]
  - Tonsillitis [Unknown]
  - Nocturnal dyspnoea [Unknown]
  - Nausea [Unknown]
  - Headache [Unknown]
  - Ear pain [Unknown]
  - Rhinitis [Unknown]
  - Laryngitis [Unknown]
  - Ligament sprain [Unknown]
  - Chest pain [Unknown]
  - Diarrhoea [Unknown]
  - Otitis media acute [Unknown]
  - Vomiting [Unknown]
  - Dysphonia [Unknown]
  - Cardiac murmur [Unknown]
  - Off label use [Unknown]

NARRATIVE: CASE EVENT DATE: 20070616
